FAERS Safety Report 9001146 (Version 1)
Quarter: 2013Q1

REPORT INFORMATION
  Report Type: Report from Study
  Country: CA (occurrence: CA)
  Receive Date: 20130107
  Receipt Date: 20130107
  Transmission Date: 20140127
  Serious: Yes (Other)
  Sender: FDA-Public Use
  Company Number: CA-JNJFOC-20121213065

PATIENT
  Sex: Female
  Weight: 40 kg

DRUGS (7)
  1. REMICADE [Suspect]
     Indication: CROHN^S DISEASE
     Route: 042
     Dates: start: 2008
  2. ACTONEL [Concomitant]
     Route: 065
  3. POTASSIUM [Concomitant]
     Route: 065
  4. HORMONE REPLACEMENT THERAPY [Concomitant]
     Route: 065
  5. TECTA [Concomitant]
     Route: 065
  6. VITAMIN D3 [Concomitant]
     Route: 065
  7. BUDESONIDE [Concomitant]
     Route: 065

REACTIONS (3)
  - Thrombosis [Recovering/Resolving]
  - Scleritis [Recovering/Resolving]
  - Conjunctivitis [Unknown]
